FAERS Safety Report 5073919-9 (Version None)
Quarter: 2006Q3

REPORT INFORMATION
  Report Type: 
  Country: None (occurrence: None)
  Receive Date: 20060808
  Receipt Date: 20050606
  Transmission Date: 20061208
  Serious: No
  Sender: FDA-Public Use
  Company Number: US-AMGEN-KDL137455

PATIENT
  Sex: Male
  Weight: 70.4 kg

DRUGS (12)
  1. PROCRIT [Suspect]
     Indication: RENAL FAILURE CHRONIC
     Dates: start: 19990101
  2. COZAAR [Concomitant]
  3. CARDIZEM [Concomitant]
  4. COREG [Concomitant]
     Route: 048
  5. ATIVAN [Concomitant]
  6. PLAVIX [Concomitant]
  7. PRAVACHOL [Concomitant]
  8. PROSCAR [Concomitant]
  9. ACTIGALL [Concomitant]
  10. SINEMET [Concomitant]
  11. UNSPECIFIED MEDICATION [Concomitant]
  12. OSCAL [Concomitant]

REACTIONS (2)
  - CONDITION AGGRAVATED [None]
  - HYPERTENSION [None]
